FAERS Safety Report 6383952-2 (Version None)
Quarter: 2009Q4

REPORT INFORMATION
  Report Type: 
  Country: None (occurrence: None)
  Receive Date: 20091001
  Receipt Date: 20090924
  Transmission Date: 20100525
  Serious: Yes (Other)
  Sender: FDA-Public Use
  Company Number: HU-AVENTIS-200920058GDDC

PATIENT
  Age: 53 Year
  Sex: Female

DRUGS (4)
  1. ARAVA [Suspect]
     Indication: RHEUMATOID ARTHRITIS
     Route: 048
     Dates: start: 20080408, end: 20090831
  2. MEDROL [Suspect]
     Indication: RHEUMATOID ARTHRITIS
     Dosage: DOSE QUANTITY: 1
     Route: 048
     Dates: start: 20080408
  3. DIPROPHOS [Concomitant]
     Indication: RHEUMATOID ARTHRITIS
     Dosage: DOSE: UNK
     Dates: start: 20070613
  4. IRON W/FOLIC ACID [Concomitant]
     Indication: RHEUMATOID ARTHRITIS
     Dosage: DOSE: 1 TABLET
     Route: 048
     Dates: start: 20080623

REACTIONS (2)
  - ANGIOMYOLIPOMA [None]
  - HAEMATURIA [None]
